FAERS Safety Report 13905734 (Version 1)
Quarter: 2017Q3

REPORT INFORMATION
  Report Type: Spontaneous
  Country: IT (occurrence: IT)
  Receive Date: 20170825
  Receipt Date: 20170825
  Transmission Date: 20171127
  Serious: Yes (Death, Other)
  Sender: FDA-Public Use
  Company Number: IT-APOTEX-2013AP009162

PATIENT
  Age: 40 Year
  Sex: Male

DRUGS (4)
  1. QUETIAPINE. [Suspect]
     Active Substance: QUETIAPINE
     Dosage: 200 MG, DAILY
     Route: 065
  2. CLOZAPINE. [Suspect]
     Active Substance: CLOZAPINE
     Indication: PSYCHOTIC DISORDER
     Dosage: 100MG/ML, 15 DROPS IN THE EVENING
     Route: 065
  3. LACTULOSE. [Suspect]
     Active Substance: LACTULOSE
     Indication: PRODUCT USED FOR UNKNOWN INDICATION
     Route: 065
  4. QUETIAPINE. [Suspect]
     Active Substance: QUETIAPINE
     Indication: PRODUCT USED FOR UNKNOWN INDICATION
     Dosage: 200MG X 2 + 300MG IN THE EVENING
     Route: 065

REACTIONS (6)
  - Constipation [Fatal]
  - Sudden death [Fatal]
  - Hepatic congestion [Fatal]
  - Hepatic steatosis [Fatal]
  - Ileus paralytic [Fatal]
  - Conduction disorder [Fatal]
